FAERS Safety Report 18084954 (Version 1)
Quarter: 2020Q3

REPORT INFORMATION
  Report Type: Spontaneous
  Country: US (occurrence: US)
  Receive Date: 20200729
  Receipt Date: 20200729
  Transmission Date: 20201103
  Serious: No
  Sender: FDA-Public Use
  Company Number: US-ALKEM LABORATORIES LIMITED-US-ALKEM-2020-00440

PATIENT

DRUGS (1)
  1. CEFUROXIME AXETIL. [Suspect]
     Active Substance: CEFUROXIME AXETIL
     Indication: SINUSITIS
     Dosage: UNK
     Route: 065
     Dates: start: 20191218

REACTIONS (10)
  - Pain [Unknown]
  - Headache [Unknown]
  - Muscle tightness [Unknown]
  - Abdominal pain upper [Unknown]
  - Insomnia [Unknown]
  - Urticaria [Unknown]
  - Psychomotor hyperactivity [Unknown]
  - Back pain [Unknown]
  - Myalgia [Unknown]
  - Hypoaesthesia [Not Recovered/Not Resolved]
